FAERS Safety Report 7268623-2 (Version None)
Quarter: 2011Q1

REPORT INFORMATION
  Report Type: 
  Country: None (occurrence: None)
  Receive Date: 20110121
  Receipt Date: 20110105
  Transmission Date: 20110831
  Serious: Yes (Other)
  Sender: FDA-Public Use
  Company Number: 1000017769

PATIENT
  Age: 41 Year
  Sex: Female
  Weight: 44 kg

DRUGS (2)
  1. LEXAPRO [Suspect]
     Indication: ANXIETY
     Dosage: 5 MG (5 MG, 1IN 1 D)
  2. LEXAPRO [Suspect]
     Indication: ANXIETY
     Dosage: 10 MG (10 MG, 1 IN 1 D)
     Dates: start: 20101114

REACTIONS (4)
  - TREMOR [None]
  - MYALGIA [None]
  - FEELING ABNORMAL [None]
  - FATIGUE [None]
